FAERS Safety Report 7459640-8 (Version None)
Quarter: 2011Q2

REPORT INFORMATION
  Report Type: 
  Country: None (occurrence: None)
  Receive Date: 20110505
  Receipt Date: 20110422
  Transmission Date: 20111010
  Serious: Yes (Hospitalization, Other)
  Sender: FDA-Public Use
  Company Number: PHHY2011NL35324

PATIENT
  Sex: Male

DRUGS (18)
  1. ZOMETA [Suspect]
     Indication: PROSTATE CANCER METASTATIC
     Dosage: 4 MG/5 ML, ONCE PER 28 DAYS
     Route: 042
     Dates: start: 20101104
  2. FOLIC ACID [Concomitant]
     Dosage: 0.5 MG, UNK
  3. METFORMINE [Concomitant]
  4. ZOMETA [Suspect]
     Dosage: 4 MG/5 ML, ONCE PER 28 DAYS
     Route: 042
     Dates: start: 20110422
  5. CYPROTERONE [Concomitant]
     Dosage: 50 MG, UNK
  6. ZOMETA [Suspect]
     Dosage: 4 MG/5 ML, ONCE PER 28 DAYS
     Route: 042
     Dates: start: 20110324
  7. FERROFUMARAT [Concomitant]
     Dosage: 200 MG, TID
  8. FENTANYL [Concomitant]
     Dosage: 75 MG, TID
  9. X-PRAEP [Concomitant]
     Dosage: 30 ML, UNK
  10. ONDANSETRON [Concomitant]
     Dosage: 8 MG, PRN
  11. TEMAZ [Concomitant]
     Dosage: 20 MG, PRN
  12. PARACETAMOL [Concomitant]
     Dosage: 500 MG, UNK
  13. ATORVASTATIN [Concomitant]
     Dosage: 20 MG, UNK
  14. OMEPRAZOL [Concomitant]
  15. PREDNISOLONE [Concomitant]
     Dosage: 2.5 MG, UNK
  16. METOCLOPRAMID [Concomitant]
     Dosage: 10 MG, TID
  17. GLIMEPIRIDE [Concomitant]
     Dosage: 1 MG, UNK
  18. SOTALOL HCL [Concomitant]
     Dosage: 80 MG, BID

REACTIONS (6)
  - VOMITING [None]
  - FATIGUE [None]
  - BLOOD COUNT ABNORMAL [None]
  - HEPATIC FUNCTION ABNORMAL [None]
  - CONSTIPATION [None]
  - MALAISE [None]
